FAERS Safety Report 24694830 (Version 2)
Quarter: 2024Q4

REPORT INFORMATION
  Report Type: Spontaneous
  Country: MK (occurrence: MK)
  Receive Date: 20241204
  Receipt Date: 20241224
  Transmission Date: 20250115
  Serious: Yes (Hospitalization, Other)
  Sender: CELLTRION
  Company Number: MK-PFIZER INC-202400310989

PATIENT

DRUGS (8)
  1. INFLIXIMAB [Suspect]
     Active Substance: INFLIXIMAB
     Dosage: 5 MG/KG; CYCLIC INDUCTION DOSE 0, 2, 6 WEEK, MAINTENANCE DOSE: EVERY 8 WEEKS
     Dates: start: 202010
  2. INFLIXIMAB [Suspect]
     Active Substance: INFLIXIMAB
     Dosage: 5 MG/KG, CYCLIC, MAINTENANCE EVERY 6 WEEKS
     Dates: start: 202302
  3. INFLIXIMAB [Suspect]
     Active Substance: INFLIXIMAB
     Dosage: 5 MG/KG, CYCLIC, MAINTENANCE EVERY 6 WEEKS
     Dates: start: 202303
  4. SULFASALAZINE [Concomitant]
     Active Substance: SULFASALAZINE
     Indication: Ankylosing spondylitis
     Dosage: 500 MG
     Dates: start: 201401
  5. SULFASALAZINE [Concomitant]
     Active Substance: SULFASALAZINE
     Dosage: UNK
  6. LANSOL [Concomitant]
     Dosage: 30 MG, 1X/DAY
     Dates: start: 201401
  7. ARCOXIA [Concomitant]
     Active Substance: ETORICOXIB
     Dosage: 90 MG, 1X/DAY
     Dates: start: 201401
  8. VITAMIN D NOS [Concomitant]
     Active Substance: CHOLECALCIFEROL\ERGOCALCIFEROL
     Dosage: UNK
     Dates: start: 201405

REACTIONS (4)
  - Constipation [Unknown]
  - Condition aggravated [Not Recovered/Not Resolved]
  - Enthesopathy [Unknown]
  - Anaemia [Unknown]

NARRATIVE: CASE EVENT DATE: 20230213
